FAERS Safety Report 9717325 (Version 2)
Quarter: 2013Q4

REPORT INFORMATION
  Report Type: Spontaneous
  Country: US (occurrence: US)
  Receive Date: 20131127
  Receipt Date: 20131220
  Transmission Date: 20140711
  Serious: Yes (Hospitalization)
  Sender: FDA-Public Use
  Company Number: US-LUNDBECK-DKLU1095521

PATIENT
  Age: 1 Year
  Sex: Male
  Weight: 11 kg

DRUGS (3)
  1. SABRIL (FOR ORAL SOLUTION) [Suspect]
     Indication: INFANTILE SPASMS
     Route: 048
     Dates: start: 20130321
  2. SABRIL (FOR ORAL SOLUTION) [Suspect]
  3. KEPPRA [Suspect]
     Indication: CONVULSION
     Route: 048
     Dates: start: 20130115

REACTIONS (2)
  - Gastrostomy [Recovered/Resolved]
  - Hypophagia [Unknown]
